FAERS Safety Report 5299267-X (Version None)
Quarter: 2007Q2

REPORT INFORMATION
  Report Type: 
  Country: None (occurrence: None)
  Receive Date: 20070410
  Receipt Date: 20060405
  Transmission Date: 20071010
  Serious: Yes (Other)
  Sender: FDA-Public Use
  Company Number: BDI-008105

PATIENT
  Age: 62 Year
  Sex: Female

DRUGS (6)
  1. ISOVUE-300 [Suspect]
     Indication: ABSCESS
     Dosage: 150 ML ONCE IV
     Route: 042
     Dates: start: 20060404, end: 20060404
  2. ISOVUE-300 [Suspect]
     Indication: COMPUTERISED TOMOGRAM
     Dosage: 150 ML ONCE IV
     Route: 042
     Dates: start: 20060404, end: 20060404
  3. ISOVUE-300 [Suspect]
     Indication: COMPUTERISED TOMOGRAM ABDOMEN
     Dosage: 150 ML ONCE IV
     Route: 042
     Dates: start: 20060404, end: 20060404
  4. ALBUTEROL [Concomitant]
  5. HEPARIN [Concomitant]
  6. REGULAR INSULIN [Concomitant]

REACTIONS (3)
  - CONTRAST MEDIA REACTION [None]
  - RESPIRATORY ARREST [None]
  - VOMITING [None]
